FAERS Safety Report 4349429-0 (Version None)
Quarter: 2004Q2

REPORT INFORMATION
  Report Type: 
  Country: None (occurrence: None)
  Receive Date: 20040426
  Receipt Date: 20040413
  Transmission Date: 20050107
  Serious: Yes (Life-Threatening)
  Sender: FDA-Public Use
  Company Number: 04H-028-0257401-00

PATIENT
  Sex: 0

DRUGS (2)
  1. MORPHINE SULFATE INJ [Suspect]
     Indication: ANALGESIC EFFECT
     Dosage: 0.15 MG/KG, LOADING DOSE, INTRAVENOUS
     Route: 042
  2. PLACEBO [Concomitant]

REACTIONS (1)
  - ACUTE CHEST SYNDROME [None]
